FAERS Safety Report 6033966-7 (Version None)
Quarter: 2009Q1

REPORT INFORMATION
  Report Type: 
  Country: None (occurrence: None)
  Receive Date: 20090112
  Receipt Date: 20090107
  Transmission Date: 20090719
  Serious: Yes (Hospitalization)
  Sender: FDA-Public Use
  Company Number: PHBS2009CN00460

PATIENT
  Sex: Male

DRUGS (2)
  1. CYCLOSPORINE [Suspect]
     Route: 064
  2. MYCOPHENOLATE MOFETIL [Concomitant]
     Dosage: MATERNAL DOSE: 1 G/DAY
     Route: 064

REACTIONS (5)
  - APGAR SCORE LOW [None]
  - DRUG EXPOSURE DURING PREGNANCY [None]
  - ENCEPHALOPATHY NEONATAL [None]
  - IMMUNOSUPPRESSION [None]
  - NEONATAL PNEUMONIA [None]
